FAERS Safety Report 12291500 (Version 1)
Quarter: 2016Q2

REPORT INFORMATION
  Report Type: Report from Study
  Country: US (occurrence: US)
  Receive Date: 20160421
  Receipt Date: 20160421
  Transmission Date: 20160815
  Serious: No
  Sender: FDA-Public Use
  Company Number: US-AMGEN-USASL2016024918

PATIENT
  Age: 75 Year

DRUGS (1)
  1. REPATHA [Suspect]
     Active Substance: EVOLOCUMAB
     Indication: PRODUCT USED FOR UNKNOWN INDICATION
     Dosage: UNK UNK, UNK
     Route: 065
     Dates: start: 201512

REACTIONS (5)
  - Pain in extremity [Unknown]
  - Limb discomfort [Unknown]
  - Device issue [Unknown]
  - Muscular weakness [Unknown]
  - Musculoskeletal pain [Unknown]
